FAERS Safety Report 16400023 (Version 1)
Quarter: 2019Q2

REPORT INFORMATION
  Report Type: Spontaneous
  Country: US (occurrence: US)
  Receive Date: 20190501
  Receipt Date: 20190501
  Transmission Date: 20190711
  Serious: No
  Sender: FDA-Public Use
  Company Number: None

PATIENT
  Age: 62 Year
  Sex: Female

DRUGS (1)
  1. REPATHA [Suspect]
     Active Substance: EVOLOCUMAB
     Dosage: 06/07/18 -09/08/19
     Dates: start: 20180607

REACTIONS (2)
  - Influenza like illness [None]
  - Bone pain [None]

NARRATIVE: CASE EVENT DATE: 20180607
